FAERS Safety Report 8204975-4 (Version None)
Quarter: 2012Q1

REPORT INFORMATION
  Report Type: 
  Country: None (occurrence: None)
  Receive Date: 20120313
  Receipt Date: 20120301
  Transmission Date: 20120608
  Serious: No
  Sender: FDA-Public Use
  Company Number: US-BAYER-2012-021373

PATIENT
  Sex: Female

DRUGS (2)
  1. ALEVE (CAPLET) [Suspect]
     Indication: MUSCULOSKELETAL PAIN
     Dosage: 2 DF (TABLET) ONCE
     Route: 048
  2. ASPIRIN [Concomitant]
     Dosage: 325 MG, UNK
     Route: 048

REACTIONS (1)
  - THERAPEUTIC RESPONSE DECREASED [None]
